FAERS Safety Report 25540030 (Version 1)
Quarter: 2025Q3

REPORT INFORMATION
  Report Type: Spontaneous
  Country: US (occurrence: US)
  Receive Date: 20250710
  Receipt Date: 20250710
  Transmission Date: 20251021
  Serious: No
  Sender: Thea Pharma
  Company Number: US-THEA-2025001141

PATIENT
  Age: 66 Year
  Sex: Male

DRUGS (1)
  1. IYUZEH [Suspect]
     Active Substance: LATANOPROST
     Indication: Glaucoma
     Dosage: EVERY NIGHT AT BEDTIME
     Route: 047
     Dates: start: 20250321

REACTIONS (2)
  - Rash [Recovered/Resolved]
  - Conjunctivitis allergic [Recovered/Resolved]

NARRATIVE: CASE EVENT DATE: 20250423
